FAERS Safety Report 12217487 (Version 1)
Quarter: 2016Q1

REPORT INFORMATION
  Report Type: Spontaneous
  Country: US (occurrence: US)
  Receive Date: 20160329
  Receipt Date: 20160329
  Transmission Date: 20160526
  Serious: Yes (Other)
  Sender: FDA-Public Use
  Company Number: US-ASTRAZENECA-2016SE32173

PATIENT
  Age: 26277 Day
  Sex: Male
  Weight: 70.3 kg

DRUGS (1)
  1. SYMBICORT [Suspect]
     Active Substance: BUDESONIDE\FORMOTEROL FUMARATE DIHYDRATE
     Indication: CHRONIC OBSTRUCTIVE PULMONARY DISEASE
     Dosage: TWO PUFFS OF 160-4.5MCG TWO TIMES A DAY
     Route: 055
     Dates: start: 20160310, end: 20160310

REACTIONS (2)
  - Seizure [Unknown]
  - Myalgia [Unknown]

NARRATIVE: CASE EVENT DATE: 20160310
